FAERS Safety Report 23520838 (Version 4)
Quarter: 2025Q2

REPORT INFORMATION
  Report Type: Report from Study
  Country: CA (occurrence: CA)
  Receive Date: 20240214
  Receipt Date: 20250513
  Transmission Date: 20250717
  Serious: Yes (Hospitalization, Other)
  Sender: CELLTRION
  Company Number: CA-CELLTRION INC.-2024CA003071

PATIENT

DRUGS (6)
  1. YUFLYMA [Suspect]
     Active Substance: ADALIMUMAB-AATY
     Indication: Crohn^s disease
     Dosage: 80 MG WEEKLY
     Route: 058
     Dates: start: 20231020, end: 20241029
  2. YUFLYMA [Suspect]
     Active Substance: ADALIMUMAB-AATY
     Dosage: 80 MG QWEEKLY
     Route: 058
     Dates: start: 20241010
  3. PREDNISONE [Concomitant]
     Active Substance: PREDNISONE
  4. CIPROFLOXACIN [Concomitant]
     Active Substance: CIPROFLOXACIN
  5. METRONIDAZOLE [Concomitant]
     Active Substance: METRONIDAZOLE
  6. FERROUS GLUCONATE [Concomitant]
     Active Substance: FERROUS GLUCONATE

REACTIONS (5)
  - Hospitalisation [Recovered/Resolved]
  - Ileostomy [Recovered/Resolved]
  - Symptom recurrence [Recovered/Resolved]
  - Therapy cessation [Recovered/Resolved]
  - Intentional product use issue [Recovered/Resolved]

NARRATIVE: CASE EVENT DATE: 20240813
